FAERS Safety Report 9683721 (Version 2)
Quarter: 2013Q4

REPORT INFORMATION
  Report Type: Spontaneous
  Country: CL (occurrence: CL)
  Receive Date: 20131112
  Receipt Date: 20131118
  Transmission Date: 20140711
  Serious: Yes (Other)
  Sender: FDA-Public Use
  Company Number: CL-PFIZER INC-2013320471

PATIENT
  Age: 74 Year
  Sex: Female

DRUGS (2)
  1. CARDURA [Suspect]
     Indication: HYPERTENSION
     Dosage: 4 MG, 1X/DAY
     Route: 048
     Dates: start: 2010
  2. EUTHYROX [Concomitant]
     Dosage: 100 UG, 1X/DAY

REACTIONS (1)
  - Renal disorder [Not Recovered/Not Resolved]
